FAERS Safety Report 8207823-1 (Version None)
Quarter: 2012Q1

REPORT INFORMATION
  Report Type: 
  Country: None (occurrence: None)
  Receive Date: 20120314
  Receipt Date: 20120306
  Transmission Date: 20120608
  Serious: Yes (Other)
  Sender: FDA-Public Use
  Company Number: US-US-EMD SERONO, INC.-7117830

PATIENT
  Sex: Male

DRUGS (2)
  1. REBIF [Suspect]
     Indication: MULTIPLE SCLEROSIS
     Route: 058
     Dates: end: 20110501
  2. REBIF [Suspect]
     Route: 058
     Dates: start: 20120228

REACTIONS (3)
  - INFLUENZA LIKE ILLNESS [None]
  - RECTAL ABSCESS [None]
  - HAEMORRHOID OPERATION [None]
